FAERS Safety Report 6112240-4 (Version None)
Quarter: 2009Q1

REPORT INFORMATION
  Report Type: 
  Country: None (occurrence: None)
  Receive Date: 20090310
  Receipt Date: 20090128
  Transmission Date: 20090719
  Serious: Yes (Other)
  Sender: FDA-Public Use
  Company Number: DSA_33321_2009

PATIENT
  Age: 67 Year
  Sex: Female

DRUGS (2)
  1. MONO-TILDIEM (MONO-TILDIEM - DILTIAZEM HYDROCHLORIDE) (NOT SPECIFIED) [Suspect]
     Indication: DRUG USE FOR UNKNOWN INDICATION
     Dosage: (DF ORAL)
     Route: 048
     Dates: start: 20080301
  2. CORTANCYL [Concomitant]

REACTIONS (2)
  - CONDITION AGGRAVATED [None]
  - PEMPHIGUS [None]
